FAERS Safety Report 9718851 (Version 1)
Quarter: 2013Q4

REPORT INFORMATION
  Report Type: Spontaneous
  Country: US (occurrence: US)
  Receive Date: 20131127
  Receipt Date: 20131127
  Transmission Date: 20140711
  Serious: Yes (Other)
  Sender: FDA-Public Use
  Company Number: US-PFIZER INC-2013338507

PATIENT
  Age: 68 Year
  Sex: Female
  Weight: 80.73 kg

DRUGS (4)
  1. LYRICA [Suspect]
     Indication: FIBROMYALGIA
     Dosage: 225 MG, 2X/DAY
     Route: 048
  2. NEXIUM [Concomitant]
     Dosage: UNK
  3. TOPROL XL [Concomitant]
     Indication: HYPERTENSION
     Dosage: UNK
  4. EFFEXOR [Concomitant]
     Dosage: UNK

REACTIONS (2)
  - Deafness [Unknown]
  - Blood cholesterol increased [Unknown]
